FAERS Safety Report 6867067-2 (Version None)
Quarter: 2010Q3

REPORT INFORMATION
  Report Type: 
  Country: None (occurrence: None)
  Receive Date: 20100722
  Receipt Date: 20100630
  Transmission Date: 20110219
  Serious: Yes (Life-Threatening, Hospitalization)
  Sender: FDA-Public Use
  Company Number: A0799179A

PATIENT
  Age: 55 Year
  Sex: Male

DRUGS (14)
  1. AVANDIA [Suspect]
     Indication: DIABETES MELLITUS
     Dosage: 4MG PER DAY
     Route: 048
     Dates: start: 20000101, end: 20070801
  2. AVANDAMET [Suspect]
     Indication: DIABETES MELLITUS
     Route: 048
     Dates: start: 20040614, end: 20070101
  3. INDERAL [Concomitant]
  4. GLUCOPHAGE [Concomitant]
  5. LOPID [Concomitant]
  6. DARVOCET [Concomitant]
  7. AMARYL [Concomitant]
  8. GLUCOPHAGE [Concomitant]
  9. AMITRIPTYLINE HYDROCHLORIDE [Concomitant]
  10. ANTI-HYPERLIPIDEMIC [Concomitant]
  11. LIPITOR [Concomitant]
  12. PROTONIX [Concomitant]
  13. ELAVIL [Concomitant]
  14. NEURONTIN [Concomitant]

REACTIONS (4)
  - CARDIOMYOPATHY [None]
  - CEREBROVASCULAR ACCIDENT [None]
  - CORONARY ARTERY DISEASE [None]
  - MYOCARDIAL INFARCTION [None]
